FAERS Safety Report 10570344 (Version 2)
Quarter: 2015Q1

REPORT INFORMATION
  Report Type: Spontaneous
  Country: HU (occurrence: HU)
  Receive Date: 20141107
  Receipt Date: 20150121
  Transmission Date: 20150720
  Serious: Yes (Hospitalization, Other)
  Sender: FDA-Public Use
  Company Number: HU-JNJFOC-20141101983

PATIENT
  Age: 60 Year
  Sex: Male
  Weight: 100 kg

DRUGS (7)
  1. FUROSEMID [Concomitant]
     Active Substance: FUROSEMIDE
     Indication: HYPERTENSION
     Dosage: EVERY 2ND DAY
     Route: 048
     Dates: start: 2010
  2. MESALAZINE [Concomitant]
     Active Substance: MESALAMINE
     Indication: CROHN^S DISEASE
     Route: 048
     Dates: start: 2010
  3. POTASSIUM [Concomitant]
     Active Substance: POTASSIUM
     Indication: HYPOKALAEMIA
     Route: 065
     Dates: start: 2010
  4. COMBIGAN [Concomitant]
     Active Substance: BRIMONIDINE TARTRATE\TIMOLOL MALEATE
     Indication: CATARACT
     Dosage: 2 FOR 1 DROP DAILY
     Route: 061
     Dates: start: 2013
  5. OMNIC TOCAS [Concomitant]
     Indication: BENIGN PROSTATIC HYPERPLASIA
     Route: 048
     Dates: start: 2011
  6. REMICADE [Suspect]
     Active Substance: INFLIXIMAB
     Indication: CROHN^S DISEASE
     Route: 042
     Dates: start: 20120425, end: 20140715
  7. CLOPAMIDE [Concomitant]
     Active Substance: CLOPAMIDE
     Indication: HYPERTENSION
     Route: 048
     Dates: start: 2009

REACTIONS (3)
  - Rectal polyp [Unknown]
  - Colon cancer [Not Recovered/Not Resolved]
  - Rectal adenocarcinoma [Unknown]

NARRATIVE: CASE EVENT DATE: 20141007
